FAERS Safety Report 15432923 (Version 1)
Quarter: 2018Q3

REPORT INFORMATION
  Report Type: Spontaneous
  Country: US (occurrence: US)
  Receive Date: 20180927
  Receipt Date: 20180927
  Transmission Date: 20181010
  Serious: No
  Sender: FDA-Public Use
  Company Number: US-NOVEN PHARMACEUTICALS, INC.-US2017001062

PATIENT

DRUGS (2)
  1. COMBIPATCH [Suspect]
     Active Substance: ESTRADIOL\NORETHINDRONE ACETATE
     Indication: MENOPAUSAL SYMPTOMS
     Dosage: 50/140 MG, UNKNOWN
     Route: 062
     Dates: end: 20170824
  2. SERTRALINE [Concomitant]
     Active Substance: SERTRALINE HYDROCHLORIDE
     Indication: ANXIETY
     Dosage: 100 MG, UNK

REACTIONS (10)
  - Application site erythema [Unknown]
  - Application site irritation [Not Recovered/Not Resolved]
  - Off label use [Unknown]
  - Therapy cessation [Not Recovered/Not Resolved]
  - Application site pruritus [Unknown]
  - Application site urticaria [Unknown]
  - Product quality issue [Unknown]
  - Application site pain [Unknown]
  - Application site rash [Unknown]
  - Product storage error [Unknown]

NARRATIVE: CASE EVENT DATE: 2017
